FAERS Safety Report 12167611 (Version 1)
Quarter: 2016Q1

REPORT INFORMATION
  Report Type: Spontaneous
  Country: US (occurrence: None)
  Receive Date: 20160309
  Receipt Date: 20160309
  Transmission Date: 20160526
  Serious: No
  Sender: FDA-Public Use
  Company Number: None

PATIENT
  Age: 51 Year
  Sex: Female

DRUGS (2)
  1. LEVAQUIN [Concomitant]
     Active Substance: LEVOFLOXACIN
  2. XELJANZ [Suspect]
     Active Substance: TOFACITINIB CITRATE
     Indication: AUTOIMMUNE DISORDER
     Dosage: 5 MG, TWICE DAILY, BY MOUTH
     Dates: start: 20151202, end: 20160229

REACTIONS (1)
  - Gastrointestinal disorder [None]

NARRATIVE: CASE EVENT DATE: 20160108
